FAERS Safety Report 23802870 (Version 2)
Quarter: 2024Q2

REPORT INFORMATION
  Report Type: Spontaneous
  Country: GB (occurrence: GB)
  Receive Date: 20240501
  Receipt Date: 20240508
  Transmission Date: 20240716
  Serious: No
  Sender: FDA-Public Use
  Company Number: GB-MYLANLABS-2024M1038397

PATIENT
  Sex: Male

DRUGS (2)
  1. CLOZARIL [Suspect]
     Active Substance: CLOZAPINE
     Indication: Schizophrenia
     Dosage: UNK
     Route: 048
     Dates: start: 20071227
  2. CLOZARIL [Suspect]
     Active Substance: CLOZAPINE
     Indication: Antisocial personality disorder

REACTIONS (1)
  - Off label use [Unknown]
